FAERS Safety Report 5792435-X (Version None)
Quarter: 2008Q2

REPORT INFORMATION
  Report Type: 
  Country: None (occurrence: None)
  Receive Date: 20080626
  Receipt Date: 20080616
  Transmission Date: 20081010
  Serious: Yes (Hospitalization, Disabling, Other)
  Sender: FDA-Public Use
  Company Number: US-PFIZER INC-2005140699

PATIENT
  Sex: Male
  Weight: 98 kg

DRUGS (3)
  1. CELEBREX [Suspect]
     Indication: ARTHRITIS
     Route: 048
     Dates: start: 20001001, end: 20021001
  2. CELEBREX [Suspect]
     Indication: OSTEOARTHRITIS
  3. VIOXX [Suspect]
     Indication: ARTHRITIS
     Route: 048

REACTIONS (3)
  - ANXIETY [None]
  - CEREBROVASCULAR ACCIDENT [None]
  - CORONARY ARTERY OCCLUSION [None]
